FAERS Safety Report 10062252 (Version 2)
Quarter: 2014Q2

REPORT INFORMATION
  Report Type: Spontaneous
  Country: DK (occurrence: JP)
  Receive Date: 20140407
  Receipt Date: 20140430
  Transmission Date: 20141212
  Serious: Yes (Life-Threatening)
  Sender: FDA-Public Use
  Company Number: JP-FRI-1000066194

PATIENT
  Age: 52 Year
  Sex: Female
  Weight: 58 kg

DRUGS (7)
  1. LEXAPRO [Suspect]
     Indication: DEPRESSION
     Dosage: 10 MG
     Route: 048
     Dates: start: 20140219, end: 20140221
  2. LIMAS [Concomitant]
     Indication: BIPOLAR DISORDER
     Dosage: 300 MG
     Route: 048
     Dates: start: 20131118, end: 201403
  3. SOLANAX [Concomitant]
     Indication: ANXIETY
     Dosage: 1.2 MG
     Route: 048
     Dates: start: 20131118, end: 201403
  4. ETIZOLAM [Concomitant]
     Indication: ANXIETY
     Dosage: 1 MG
     Route: 048
     Dates: start: 20131118, end: 201403
  5. BROTIZOLAM OD [Concomitant]
     Indication: SLEEP DISORDER
     Dosage: 0.25 MG
     Route: 048
     Dates: start: 20131118, end: 201403
  6. FLUNITRAZEPAM [Concomitant]
     Indication: SLEEP DISORDER
     Dosage: 2 MG
     Route: 048
     Dates: start: 20131118, end: 201403
  7. PHENOBAL [Concomitant]
     Indication: SLEEP DISORDER
     Dosage: 30 MG
     Route: 048
     Dates: start: 20131118, end: 201403

REACTIONS (3)
  - Aggression [Recovered/Resolved]
  - Suicide attempt [Recovered/Resolved]
  - Altered state of consciousness [Recovered/Resolved]
